FAERS Safety Report 7774369-4 (Version None)
Quarter: 2011Q3

REPORT INFORMATION
  Report Type: 
  Country: None (occurrence: None)
  Receive Date: 20110923
  Receipt Date: 20110913
  Transmission Date: 20111222
  Serious: Yes (Hospitalization)
  Sender: FDA-Public Use
  Company Number: PHFR2011GB05325

PATIENT
  Age: 71 Year
  Sex: Female

DRUGS (19)
  1. DIAZEPAM [Concomitant]
     Dosage: 2 MG, QD4SDO
  2. SIMVASTATIN [Concomitant]
     Dosage: 40 MG, QD
  3. CITALOPRAM HYDROBROMIDE [Concomitant]
     Dosage: 20 MG, QD
  4. LACTULOSE [Concomitant]
     Dosage: 15 ML, BID
  5. PERINDOPRIL [Concomitant]
     Dosage: 8 MG, QD
  6. RISPERIDONE [Concomitant]
     Dosage: 7 MG, QD
  7. TRAMADOL HCL [Concomitant]
     Dosage: 50 MG, QD4SDO
  8. CLOZAPINE [Suspect]
     Route: 048
     Dates: start: 20110401, end: 20110421
  9. LANTUS [Concomitant]
     Dosage: 30 IU, QD
  10. ZOPICLONE [Concomitant]
     Dosage: 7.5 MG, QD
  11. GLICLAZIDE [Concomitant]
     Dosage: 160 MG, BID
  12. HYDROMOL [Concomitant]
     Dosage: AS NEEDED
  13. ASPIRIN [Concomitant]
     Dosage: 75 MG, QD
  14. FUROSEMIDE [Concomitant]
     Dosage: 80 MG, QD
  15. MOVIPREP [Concomitant]
     Dosage: AS NEEDED
  16. ACETAMINOPHEN [Concomitant]
     Dosage: 1 G, QD4SDO
  17. PROCYCLIDINE HYDROCHLORIDE 2MG TAB [Concomitant]
     Dosage: 5 MG, QD
  18. SENNA [Concomitant]
     Dosage: 15 MG, QD
  19. METFORMIN HCL [Concomitant]
     Dosage: 2 G, QD

REACTIONS (4)
  - BLOOD ALKALINE PHOSPHATASE INCREASED [None]
  - HEPATIC STEATOSIS [None]
  - LIVER FUNCTION TEST ABNORMAL [None]
  - ALANINE AMINOTRANSFERASE INCREASED [None]
